FAERS Safety Report 6220186-6 (Version None)
Quarter: 2009Q2

REPORT INFORMATION
  Report Type: 
  Country: None (occurrence: None)
  Receive Date: 20090605
  Receipt Date: 20090522
  Transmission Date: 20091009
  Serious: Yes (Hospitalization, Disabling)
  Sender: FDA-Public Use
  Company Number: 230253K09BRA

PATIENT
  Age: 33 Year
  Sex: Male

DRUGS (1)
  1. REBIF [Suspect]
     Indication: PRIMARY PROGRESSIVE MULTIPLE SCLEROSIS
     Dosage: 22 MCG, 3 IN 1 WEEKS
     Dates: start: 20060815, end: 20090510

REACTIONS (4)
  - ASTHENIA [None]
  - DIPLEGIA [None]
  - INFECTION IN AN IMMUNOCOMPROMISED HOST [None]
  - VISION BLURRED [None]
